FAERS Safety Report 6915179-7 (Version None)
Quarter: 2010Q3

REPORT INFORMATION
  Report Type: 
  Country: None (occurrence: None)
  Receive Date: 20100809
  Receipt Date: 20100805
  Transmission Date: 20110219
  Serious: Yes (Hospitalization)
  Sender: FDA-Public Use
  Company Number: GB-ALLERGAN-1010145US

PATIENT
  Sex: Female

DRUGS (2)
  1. BOTOX [Suspect]
     Indication: SKIN WRINKLING
     Dosage: UNK
     Route: 030
     Dates: start: 20100401, end: 20100401
  2. BOTOX [Suspect]
     Dosage: UNK
     Route: 030

REACTIONS (7)
  - DEHYDRATION [None]
  - DRY MOUTH [None]
  - FACIAL PAIN [None]
  - FACIAL PARESIS [None]
  - HEADACHE [None]
  - HEAT STROKE [None]
  - MALAISE [None]
